FAERS Safety Report 7272037-9 (Version None)
Quarter: 2010Q4

REPORT INFORMATION
  Report Type: 
  Country: None (occurrence: None)
  Receive Date: 20101130
  Receipt Date: 20100127
  Transmission Date: 20110411
  Serious: Yes (Hospitalization)
  Sender: FDA-Public Use
  Company Number: 2010SP006063

PATIENT
  Age: 40 Year
  Sex: Female
  Weight: 81.6475 kg

DRUGS (14)
  1. NUVARING [Suspect]
     Indication: UTERINE LEIOMYOMA
     Dates: start: 20071201, end: 20080622
  2. HYDROCHLOROTHIAZIDE [Concomitant]
  3. KEPPRA [Concomitant]
  4. FLONASE [Concomitant]
  5. SINGULAIR [Concomitant]
  6. ANAPROX DS [Concomitant]
  7. BACTRIM DS [Concomitant]
  8. DIFLUCAN [Concomitant]
  9. FLAGYL [Concomitant]
  10. IBUPROFEN [Concomitant]
  11. VALIUM [Concomitant]
  12. BENAZEPRIL HYDROCHLORIDE AND HYDROCHLOROTHIAZIDE [Concomitant]
  13. CYMBALTA [Concomitant]
  14. TUSSIONEX [Concomitant]

REACTIONS (3)
  - CYSTITIS [None]
  - PULMONARY EMBOLISM [None]
  - VULVOVAGINAL MYCOTIC INFECTION [None]
